FAERS Safety Report 6071516-X (Version None)
Quarter: 2009Q1

REPORT INFORMATION
  Report Type: 
  Country: None (occurrence: None)
  Receive Date: 20090206
  Receipt Date: 20090206
  Transmission Date: 20090719
  Serious: Yes (Other)
  Sender: FDA-Public Use
  Company Number: None

PATIENT
  Age: 53 Year
  Sex: Female
  Weight: 59.8748 kg

DRUGS (2)
  1. HYPER SAL 7% 4ML UNIT DOSE VIALS PARI RESPIRATORY EQUIPMENT, INC. [Suspect]
     Indication: CYSTIC FIBROSIS
     Dosage: 4ML 2X/DAY INHAL
     Route: 055
     Dates: start: 20080716, end: 20090105
  2. HYPER SAL 7% 4ML UNIT DOSE VIALS PARI RESPIRATORY EQUIPMENT, INC. [Suspect]
     Indication: RESPIRATORY THERAPY
     Dosage: 4ML 2X/DAY INHAL
     Route: 055
     Dates: start: 20080716, end: 20090105

REACTIONS (4)
  - CUSHINGOID [None]
  - MEDICATION ERROR [None]
  - OFF LABEL USE [None]
  - SUPERFICIAL VEIN PROMINENCE [None]
